FAERS Safety Report 9174101 (Version 1)
Quarter: 2013Q1

REPORT INFORMATION
  Report Type: Spontaneous
  Country: US (occurrence: US)
  Receive Date: 20130313
  Receipt Date: 20130313
  Transmission Date: 20140127
  Serious: Yes (Life-Threatening, Hospitalization)
  Sender: FDA-Public Use
  Company Number: LMI-2013-00070

PATIENT
  Age: 87 Year
  Sex: Female
  Weight: 68.04 kg

DRUGS (15)
  1. DEFINITY [Suspect]
     Indication: ECHOCARDIOGRAM
     Dosage: DILUTED IN 8.5 ML NORMAL SALINE (2 ML)
     Route: 040
     Dates: start: 20130219, end: 20130219
  2. ACETAMINOPHEN (PARACETAMOL) [Concomitant]
  3. ENALAPRIL [Concomitant]
  4. GABAPENTIN (GABAPENTIN) [Concomitant]
  5. TRAMADOL (TRAMADOL) [Concomitant]
  6. NYSTATIN (NYSTATIN) [Concomitant]
  7. SENNA DOCUSATE (DOCUSATE, SENNA ALEXANDRINA) [Concomitant]
  8. DICLOFENAC (DICLOFENAC) [Concomitant]
  9. ATENOLOL (ATENOLOL) [Concomitant]
  10. CHOLECALCIFEROL (COLECALCIFEROL) [Concomitant]
  11. LEVOTHYROXINE (LEVOTHYROXINE) [Concomitant]
  12. TRIAMCINOLONE (TRIAMCINOLONE) [Concomitant]
  13. MULTI VITAMIN (VITAMINS NOS) [Concomitant]
  14. CALCIUM (CALCIUM) [Concomitant]
  15. VITAMIN D (ERGOCALCIFEROL) [Concomitant]

REACTIONS (6)
  - Anaphylactic shock [None]
  - Atrial fibrillation [None]
  - Renal failure acute [None]
  - Burning sensation [None]
  - Eye movement disorder [None]
  - Respiratory arrest [None]
